FAERS Safety Report 13268180 (Version 2)
Quarter: 2017Q1

REPORT INFORMATION
  Report Type: Report from Study
  Country: US (occurrence: US)
  Receive Date: 20170224
  Receipt Date: 20170327
  Transmission Date: 20170428
  Serious: Yes (Other)
  Sender: FDA-Public Use
  Company Number: US-PFIZER INC-2016513008

PATIENT
  Age: 72 Year
  Sex: Female

DRUGS (2)
  1. IBRANCE [Suspect]
     Active Substance: PALBOCICLIB
     Indication: BREAST CANCER FEMALE
     Dosage: 125 MG, CYCLIC (DAILY, 3 WEEKS ON/1 WEEK OFF)
     Route: 048
     Dates: start: 20160926, end: 20161020
  2. IBRANCE [Suspect]
     Active Substance: PALBOCICLIB
     Dosage: 100 MG, CYCLIC (DAILY, 3 WEEKS ON/1 WEEK OFF)
     Route: 048
     Dates: start: 20161103

REACTIONS (9)
  - Abdominal discomfort [Unknown]
  - Abdominal tenderness [Unknown]
  - White blood cell count decreased [Unknown]
  - Dizziness [Unknown]
  - Nausea [Unknown]
  - Bone marrow failure [Unknown]
  - Abdominal pain upper [Unknown]
  - Fatigue [Unknown]
  - Asthenia [Unknown]
